FAERS Safety Report 5100675-8 (Version None)
Quarter: 2006Q3

REPORT INFORMATION
  Report Type: 
  Country: None (occurrence: None)
  Receive Date: 20060906
  Receipt Date: 20060824
  Transmission Date: 20061208
  Serious: Yes (Hospitalization, Other)
  Sender: FDA-Public Use
  Company Number: 2005014573

PATIENT
  Age: 60 Year
  Sex: Female

DRUGS (9)
  1. CABERGOLINE [Suspect]
     Indication: BASAL GANGLION DEGENERATION
     Dosage: 10 MG DAILY, ORAL
     Route: 048
     Dates: start: 20011010
  2. GABAPENTIN [Concomitant]
  3. SINEMET [Concomitant]
  4. PAMOL (PARACETAMOL) [Concomitant]
  5. MANDOLGIN (TRAMADOL) [Concomitant]
  6. REQUIP [Concomitant]
  7. CENTYL MITE W/POTASSIUM CHLORIDE (BENDROFLUMETHIAZIDE, POTASSIUM CHLOR [Concomitant]
  8. PERMAX [Concomitant]
  9. SIFROL (PRAMIPEXOLE DIHYDROCHLORIDE) [Concomitant]

REACTIONS (12)
  - BRADYCARDIA [None]
  - CARDIAC PROCEDURE COMPLICATION [None]
  - CHEST DISCOMFORT [None]
  - DRUG INEFFECTIVE [None]
  - DYSPNOEA [None]
  - ELECTROCARDIOGRAM ABNORMAL [None]
  - HEART RATE IRREGULAR [None]
  - MITRAL VALVE INCOMPETENCE [None]
  - MITRAL VALVE STENOSIS [None]
  - POST PROCEDURAL COMPLICATION [None]
  - SURGERY [None]
  - WEIGHT DECREASED [None]
